FAERS Safety Report 14676350 (Version 1)
Quarter: 2018Q1

REPORT INFORMATION
  Report Type: Spontaneous
  Country: US (occurrence: US)
  Receive Date: 20180323
  Receipt Date: 20180323
  Transmission Date: 20180509
  Serious: No
  Sender: FDA-Public Use
  Company Number: None

PATIENT
  Age: 57 Year
  Sex: Male
  Weight: 131.54 kg

DRUGS (11)
  1. VITAMIN D [Concomitant]
     Active Substance: CHOLECALCIFEROL
  2. COENZYME Q10 [Concomitant]
     Active Substance: UBIDECARENONE
  3. MAGNESIUM [Concomitant]
     Active Substance: MAGNESIUM
  4. ASPIRIN. [Concomitant]
     Active Substance: ASPIRIN
  5. VALSARTAN. [Concomitant]
     Active Substance: VALSARTAN
  6. AXIRON [Concomitant]
     Active Substance: TESTOSTERONE
  7. FISH OIL [Concomitant]
     Active Substance: FISH OIL
  8. BOTOX [Suspect]
     Active Substance: ONABOTULINUMTOXINA
     Indication: MIGRAINE
     Dates: start: 20150215, end: 20150215
  9. NORTRIPYLINE [Concomitant]
  10. B-12 COMPLEX [Concomitant]
  11. ZINC. [Concomitant]
     Active Substance: ZINC

REACTIONS (4)
  - Fatigue [None]
  - Vision blurred [None]
  - Migraine [None]
  - Neck pain [None]

NARRATIVE: CASE EVENT DATE: 20180215
